FAERS Safety Report 8778141 (Version 4)
Quarter: 2012Q4

REPORT INFORMATION
  Report Type: Report from Study
  Country: AU (occurrence: AU)
  Receive Date: 20120912
  Receipt Date: 20121009
  Transmission Date: 20130627
  Serious: Yes (Hospitalization, Other)
  Sender: FDA-Public Use
  Company Number: AU-BRISTOL-MYERS SQUIBB COMPANY-16841090

PATIENT
  Age: 64 Year
  Sex: Male

DRUGS (13)
  1. IPILIMUMAB [Suspect]
     Indication: MALIGNANT MELANOMA
     Dosage: 1df= 3US10mg/kg. Last dose on 31Aug12.
     Route: 042
     Dates: start: 20120720, end: 20120831
  2. ENOXAPARIN [Concomitant]
     Indication: PROPHYLAXIS
     Dosage: Injection 80mg/0.8ml.
     Route: 058
  3. ROSUVASTATIN [Concomitant]
     Indication: BLOOD CHOLESTEROL INCREASED
     Dosage: Morning
  4. PANTOPRAZOLE [Concomitant]
     Dosage: Tablet,morning
  5. METOCLOPRAMIDE [Concomitant]
     Indication: NAUSEA
     Dosage: one Tablet four times a day
  6. BETAMETHASONE VALERATE [Concomitant]
     Indication: DERMATITIS ALLERGIC
     Dosage: 0.02% Cream.Apply to affected area
  7. SODIUM CHLORIDE [Concomitant]
     Dosage: Mouthwash.after each meal and at bed time
  8. BENZYDAMINE HCL [Concomitant]
     Indication: ORAL PAIN
     Dosage: Mouthwash.Before each meal
  9. NYSTATIN [Concomitant]
     Indication: CANDIDIASIS
     Dosage: Mixture.100000u/ml
  10. PARACETAMOL TABS 500 MG [Concomitant]
     Indication: PYREXIA
     Dosage: 1Df=2UNS
  11. OXYCODONE [Concomitant]
     Indication: PAIN
     Dosage: one Tablet 4 times a day.
  12. DEXAMETHASONE [Concomitant]
     Indication: INFLAMMATION
     Dosage: Take one tablet
  13. CLOPIDOGREL BISULFATE [Concomitant]
     Indication: CEREBROVASCULAR ACCIDENT
     Dosage: Tablet

REACTIONS (3)
  - Colitis [Unknown]
  - Small intestinal haemorrhage [Recovered/Resolved]
  - Large intestinal obstruction [Unknown]
